FAERS Safety Report 7490578-6 (Version None)
Quarter: 2011Q2

REPORT INFORMATION
  Report Type: 
  Country: None (occurrence: None)
  Receive Date: 20110519
  Receipt Date: 20110506
  Transmission Date: 20111010
  Serious: Yes (Hospitalization)
  Sender: FDA-Public Use
  Company Number: US-ELI_LILLY_AND_COMPANY-US201005006743

PATIENT
  Sex: Female

DRUGS (6)
  1. FORTEO [Suspect]
     Indication: OSTEOPOROSIS
     Dosage: 20 UG, DAILY (1/D)
     Route: 058
     Dates: start: 20090101
  2. FORTEO [Suspect]
     Dosage: 20 UG, QD
     Route: 058
  3. FORTEO [Suspect]
     Dosage: 20 UG, DAILY (1/D)
     Route: 058
  4. VITAMINS [Concomitant]
     Route: 065
  5. ANTIHYPERTENSIVES [Concomitant]
     Route: 065
  6. ASPIRIN [Concomitant]
     Route: 065

REACTIONS (7)
  - SLEEP DISORDER [None]
  - PELVIC FLOOR MUSCLE WEAKNESS [None]
  - DYSPNOEA [None]
  - NAIL DISORDER [None]
  - HEART RATE INCREASED [None]
  - FLUSHING [None]
  - FLATULENCE [None]
